FAERS Safety Report 5901370-5 (Version None)
Quarter: 2008Q3

REPORT INFORMATION
  Report Type: 
  Country: None (occurrence: None)
  Receive Date: 20080929
  Receipt Date: 20070529
  Transmission Date: 20090109
  Serious: Yes (Hospitalization)
  Sender: FDA-Public Use
  Company Number: US-ASTRAZENECA-2006UW07716

PATIENT
  Age: 19433 Day
  Sex: Female
  Weight: 93.4 kg

DRUGS (8)
  1. SEROQUEL [Suspect]
     Indication: DEPRESSION
     Route: 048
     Dates: start: 20051123, end: 20060821
  2. LISINOPRIL [Concomitant]
  3. AMLODIPINE [Concomitant]
  4. ASPIRIN [Concomitant]
  5. CLONIDINE [Concomitant]
  6. LORAZEPAM [Concomitant]
  7. LOTREL [Concomitant]
  8. DARVOCET [Concomitant]

REACTIONS (5)
  - CARDIAC FAILURE CONGESTIVE [None]
  - CHEST PAIN [None]
  - GASTRITIS [None]
  - HYPERTENSIVE EMERGENCY [None]
  - PANCREATITIS [None]
